FAERS Safety Report 6140760-5 (Version None)
Quarter: 2009Q1

REPORT INFORMATION
  Report Type: 
  Country: None (occurrence: None)
  Receive Date: 20090331
  Receipt Date: 20090320
  Transmission Date: 20090719
  Serious: Yes (Hospitalization)
  Sender: FDA-Public Use
  Company Number: IPS-01545_2009

PATIENT

DRUGS (6)
  1. APO-GO (APO-GO PRE-FILLED SYRINGE APOMORPHINE HYDROCHLORIDE) (NOT SPEC [Suspect]
     Indication: PARKINSON'S DISEASE
     Dosage: 10 MG QD SUBCUTANEOUS
     Route: 058
  2. PRAMIPEXOLE DIHYDROCHLORIDE [Concomitant]
  3. SINEMET [Concomitant]
  4. ENTACAPONE [Concomitant]
  5. AMOXICILLIN AND CLAVULANATE POTASSIUM [Concomitant]
  6. PARACETAMOL [Concomitant]

REACTIONS (3)
  - INJECTION SITE ABSCESS [None]
  - SKIN INFECTION [None]
  - SKIN NODULE [None]
